FAERS Safety Report 6667659-X (Version None)
Quarter: 2010Q2

REPORT INFORMATION
  Report Type: 
  Country: None (occurrence: None)
  Receive Date: 20100405
  Receipt Date: 20100324
  Transmission Date: 20101027
  Serious: Yes (Other)
  Sender: FDA-Public Use
  Company Number: B0642616A

PATIENT
  Sex: Male

DRUGS (8)
  1. COMBIVIR [Suspect]
     Indication: HIV INFECTION
     Dosage: 1TAB TWICE PER DAY
     Route: 048
     Dates: start: 20080613, end: 20091215
  2. KALETRA [Suspect]
     Indication: HIV INFECTION
     Route: 048
     Dates: start: 20080613, end: 20091215
  3. PREVISCAN [Suspect]
     Route: 048
     Dates: start: 20091101, end: 20091119
  4. SINTROM [Suspect]
     Route: 048
     Dates: start: 20091120, end: 20091215
  5. COUMADIN [Suspect]
     Route: 048
     Dates: start: 20091216, end: 20091222
  6. ARIXTRA [Concomitant]
     Route: 065
     Dates: start: 20091101, end: 20100118
  7. CLONAZEPAM [Concomitant]
     Indication: DRUG USE FOR UNKNOWN INDICATION
     Route: 050
  8. BACTRIM [Concomitant]
     Indication: DRUG USE FOR UNKNOWN INDICATION
     Route: 065

REACTIONS (3)
  - DRUG INTERACTION [None]
  - EMBOLISM VENOUS [None]
  - INTERNATIONAL NORMALISED RATIO DECREASED [None]
